FAERS Safety Report 7286657-9 (Version None)
Quarter: 2011Q1

REPORT INFORMATION
  Report Type: 
  Country: None (occurrence: None)
  Receive Date: 20110210
  Receipt Date: 20110203
  Transmission Date: 20110831
  Serious: Yes (Hospitalization)
  Sender: FDA-Public Use
  Company Number: JP-PFIZER INC-2010157313

PATIENT
  Age: 72 Year
  Sex: Female

DRUGS (4)
  1. CLARITHROMYCIN [Concomitant]
  2. RHEUMATREX [Suspect]
     Dosage: 4 MG, WEEKLY
     Route: 048
  3. REMICADE [Suspect]
     Dosage: 200 MG / DAY
  4. PREDNISOLONE [Suspect]
     Dosage: 2.5 MG/DAY
     Route: 048

REACTIONS (1)
  - PNEUMOCYSTIS JIROVECI PNEUMONIA [None]
